FAERS Safety Report 6179467-7 (Version None)
Quarter: 2009Q2

REPORT INFORMATION
  Report Type: 
  Country: None (occurrence: None)
  Receive Date: 20090505
  Receipt Date: 20090429
  Transmission Date: 20091009
  Serious: Yes (Hospitalization)
  Sender: FDA-Public Use
  Company Number: GR-ABBOTT-09P-066-0499193-00

PATIENT
  Age: 50 Year
  Sex: Female
  Weight: 88.4 kg

DRUGS (12)
  1. ZEMPLAR [Suspect]
     Indication: HYPERPARATHYROIDISM SECONDARY
     Route: 042
     Dates: start: 20080610
  2. ARANESP [Concomitant]
     Indication: DRUG USE FOR UNKNOWN INDICATION
  3. FERROVIN [Concomitant]
     Indication: DRUG USE FOR UNKNOWN INDICATION
  4. SUPERAMIN [Concomitant]
     Indication: DRUG USE FOR UNKNOWN INDICATION
  5. NEUROBION [Concomitant]
     Indication: DRUG USE FOR UNKNOWN INDICATION
  6. RENAGEL [Concomitant]
     Indication: DRUG USE FOR UNKNOWN INDICATION
  7. CALCIORAL [Concomitant]
     Indication: DRUG USE FOR UNKNOWN INDICATION
  8. DILTIAZEM HCL [Concomitant]
     Indication: DRUG USE FOR UNKNOWN INDICATION
  9. ATORSTAT [Concomitant]
     Indication: DRUG USE FOR UNKNOWN INDICATION
  10. THYRORMONE [Concomitant]
     Indication: DRUG USE FOR UNKNOWN INDICATION
  11. BEROVENT [Concomitant]
     Indication: DRUG USE FOR UNKNOWN INDICATION
  12. PULMICORT-100 [Concomitant]
     Indication: DRUG USE FOR UNKNOWN INDICATION

REACTIONS (2)
  - CARCINOID TUMOUR PULMONARY [None]
  - PYREXIA [None]
